FAERS Safety Report 4676554-7 (Version None)
Quarter: 2005Q2

REPORT INFORMATION
  Report Type: 
  Country: None (occurrence: None)
  Receive Date: 20050526
  Receipt Date: 20050526
  Transmission Date: 20051028
  Serious: Yes (Death)
  Sender: FDA-Public Use
  Company Number: None

PATIENT
  Sex: Male
  Weight: 85.3 kg

DRUGS (2)
  1. CASODEX [Suspect]
     Dosage: 50 MG 1 TAB PO QD
     Route: 048
     Dates: start: 20000221
  2. ZOLADEX [Suspect]
     Dosage: 10.8 MG SC 1 INJ Q 84 D
     Route: 058

REACTIONS (1)
  - GASTRIC CANCER [None]
